FAERS Safety Report 5496257-9 (Version None)
Quarter: 2007Q4

REPORT INFORMATION
  Report Type: 
  Country: None (occurrence: None)
  Receive Date: 20071025
  Receipt Date: 20070319
  Transmission Date: 20080405
  Serious: Yes (Hospitalization)
  Sender: FDA-Public Use
  Company Number: A0643678A

PATIENT
  Age: 71 Year
  Sex: Male

DRUGS (10)
  1. ADVAIR DISKUS 100/50 [Suspect]
     Indication: EMPHYSEMA
     Route: 055
  2. ASPIRIN [Concomitant]
  3. CALCIUM [Concomitant]
  4. FOSAMAX [Concomitant]
  5. LIPITOR [Concomitant]
  6. NABUMETONE [Concomitant]
  7. NORVASK [Concomitant]
  8. RANITIDINE HYDROCHLORIDE [Concomitant]
  9. SYNTHROID [Concomitant]
  10. XOPENEX [Concomitant]

REACTIONS (1)
  - PNEUMONIA [None]
